FAERS Safety Report 17946989 (Version 2)
Quarter: 2020Q3

REPORT INFORMATION
  Report Type: Report from Study
  Country: DE (occurrence: DE)
  Receive Date: 20200625
  Receipt Date: 20200710
  Transmission Date: 20201103
  Serious: Yes (Hospitalization, Other)
  Sender: FDA-Public Use
  Company Number: DE-PERRIGO-20DE008543

PATIENT

DRUGS (9)
  1. NIVOLUMAB [Suspect]
     Active Substance: NIVOLUMAB
     Indication: SQUAMOUS CELL CARCINOMA OF HEAD AND NECK
     Dosage: 240 MILLIGRAM, Q2WK
     Route: 042
  2. BUPRENORPHINE. [Concomitant]
     Active Substance: BUPRENORPHINE
     Dosage: 1 DOSAGE FORM: 20 MICROGRAM PER HOUR
     Route: 065
     Dates: start: 20190306, end: 20190325
  3. METAMIZOLE [Concomitant]
     Active Substance: METAMIZOLE
     Indication: PRODUCT USED FOR UNKNOWN INDICATION
     Dosage: 2.5 GRAM
     Route: 065
     Dates: start: 20190326, end: 20190411
  4. METAMIZOLE [Concomitant]
     Active Substance: METAMIZOLE
     Dosage: 750 MILLIGRAM
     Route: 065
     Dates: start: 20190225, end: 20190325
  5. BUPRENORPHINE. [Concomitant]
     Active Substance: BUPRENORPHINE
     Indication: PRODUCT USED FOR UNKNOWN INDICATION
     Dosage: 1 DOSAGE FORM: 10 MICROGRAM/ HOUR
     Route: 065
     Dates: start: 20190219, end: 20190305
  6. NICOTINE. [Suspect]
     Active Substance: NICOTINE
     Indication: PRODUCT USED FOR UNKNOWN INDICATION
     Dosage: 17.5 MILLIGRAM
     Route: 062
  7. METAMIZOLE [Concomitant]
     Active Substance: METAMIZOLE
     Dosage: 1.875 GRAM
     Route: 065
     Dates: start: 20190412, end: 20190414
  8. METAMIZOLE [Concomitant]
     Active Substance: METAMIZOLE
     Dosage: 2 GRAM
     Route: 065
     Dates: start: 20190415
  9. BUPRENORPHINE. [Concomitant]
     Active Substance: BUPRENORPHINE
     Dosage: 1 DOSAGE FORM: 40 MICROGRAM/ HOUR
     Route: 065
     Dates: start: 20190326, end: 20190405

REACTIONS (12)
  - Neck pain [Unknown]
  - Tobacco abuse [Unknown]
  - Anaemia of malignant disease [Unknown]
  - Inflammation [Unknown]
  - Pneumonia [Recovered/Resolved]
  - Hyponatraemia [Recovered/Resolved]
  - Oral candidiasis [Unknown]
  - Breath odour [Unknown]
  - Toxicity to various agents [Recovered/Resolved]
  - Tobacco withdrawal symptoms [Recovered/Resolved]
  - Insomnia [Unknown]
  - Infection [Unknown]

NARRATIVE: CASE EVENT DATE: 20190115
